FAERS Safety Report 4953769-1 (Version None)
Quarter: 2006Q1

REPORT INFORMATION
  Report Type: 
  Country: None (occurrence: None)
  Receive Date: 20060321
  Receipt Date: 20060306
  Transmission Date: 20060701
  Serious: Yes (Hospitalization)
  Sender: FDA-Public Use
  Company Number: US-2006-004761

PATIENT
  Age: 70 Year
  Sex: Female

DRUGS (1)
  1. BETASERON [Suspect]
     Indication: MULTIPLE SCLEROSIS
     Dosage: SEE IMAGE
     Route: 058
     Dates: start: 19930101, end: 20060102

REACTIONS (5)
  - ASTHENIA [None]
  - DEHYDRATION [None]
  - RESPIRATORY FAILURE [None]
  - TREMOR [None]
  - URINARY TRACT INFECTION [None]
